FAERS Safety Report 5601822-1 (Version None)
Quarter: 2008Q1

REPORT INFORMATION
  Report Type: 
  Country: None (occurrence: None)
  Receive Date: 20080124
  Receipt Date: 20071119
  Transmission Date: 20080703
  Serious: Yes (Other)
  Sender: FDA-Public Use
  Company Number: AU-PFIZER INC-2007068754

PATIENT
  Sex: Male
  Weight: 91 kg

DRUGS (1)
  1. SUTENT [Suspect]
     Route: 048
     Dates: start: 20070417, end: 20070927

REACTIONS (5)
  - DRUG TOXICITY [None]
  - DYSPEPSIA [None]
  - NAUSEA [None]
  - OESOPHAGITIS [None]
  - VOMITING [None]
